FAERS Safety Report 5599476-6 (Version None)
Quarter: 2008Q1

REPORT INFORMATION
  Report Type: 
  Country: None (occurrence: None)
  Receive Date: 20080123
  Receipt Date: 20080118
  Transmission Date: 20080703
  Serious: Yes (Life-Threatening)
  Sender: FDA-Public Use
  Company Number: ES-JNJFOC-20080105159

PATIENT
  Age: 73 Year
  Sex: Male

DRUGS (4)
  1. REOPRO [Suspect]
     Indication: THROMBOSIS PROPHYLAXIS
     Route: 042
  2. ACETYLSALICYLIC ACID SRT [Concomitant]
     Indication: THROMBOSIS PROPHYLAXIS
  3. HEPARIN SODIUM INJECTION [Concomitant]
     Indication: THROMBOSIS PROPHYLAXIS
  4. CLOPIDOGREL [Concomitant]
     Indication: THROMBOSIS PROPHYLAXIS

REACTIONS (1)
  - HAEMOPTYSIS [None]
